FAERS Safety Report 8964251 (Version 1)
Quarter: 2012Q4

REPORT INFORMATION
  Report Type: 
  Country: US (occurrence: US)
  Receive Date: 20121214
  Receipt Date: 20121214
  Transmission Date: 20130627
  Serious: Yes (Other)
  Sender: FDA-Public Use
  Company Number: 2012SP003377

PATIENT
  Sex: Male

DRUGS (2)
  1. LATUDA [Suspect]
     Indication: SCHIZOPHRENIA, UNDIFFERENTIATED TYPE
     Route: 048
     Dates: start: 201211
  2. LATUDA [Suspect]
     Indication: SCHIZOPHRENIA, UNDIFFERENTIATED TYPE
     Route: 048
     Dates: end: 201211

REACTIONS (3)
  - Psychiatric decompensation [Not Recovered/Not Resolved]
  - Delusion [Not Recovered/Not Resolved]
  - Speech disorder [Not Recovered/Not Resolved]
